FAERS Safety Report 18953454 (Version 1)
Quarter: 2021Q1

REPORT INFORMATION
  Report Type: Spontaneous
  Country: US (occurrence: US)
  Receive Date: 20210226
  Receipt Date: 20210226
  Transmission Date: 20210420
  Serious: Yes (Disabling)
  Sender: FDA-Public Use
  Company Number: None

PATIENT
  Age: 33 Year
  Sex: Female

DRUGS (1)
  1. PARAGARD T 380A [Suspect]
     Active Substance: COPPER

REACTIONS (8)
  - Fatigue [None]
  - Panic attack [None]
  - Anaemia [None]
  - Anxiety [None]
  - Neuralgia [None]
  - Insomnia [None]
  - Depression [None]
  - Autoimmune disorder [None]

NARRATIVE: CASE EVENT DATE: 20190424
